FAERS Safety Report 6580779-3 (Version None)
Quarter: 2010Q1

REPORT INFORMATION
  Report Type: 
  Country: None (occurrence: None)
  Receive Date: 20100213
  Receipt Date: 20100201
  Transmission Date: 20100710
  Serious: Yes (Hospitalization, Other)
  Sender: FDA-Public Use
  Company Number: US-ELI_LILLY_AND_COMPANY-US201002000476

PATIENT
  Sex: Male

DRUGS (1)
  1. BYETTA [Suspect]
     Dosage: 5 UG, UNKNOWN
     Route: 058

REACTIONS (3)
  - BLINDNESS [None]
  - BLOOD GLUCOSE INCREASED [None]
  - LIVING IN RESIDENTIAL INSTITUTION [None]
